FAERS Safety Report 7042040-2 (Version None)
Quarter: 2010Q4

REPORT INFORMATION
  Report Type: 
  Country: None (occurrence: None)
  Receive Date: 20101013
  Receipt Date: 20100622
  Transmission Date: 20110411
  Serious: No
  Sender: FDA-Public Use
  Company Number: US-ASTRAZENECA-2010SE29174

PATIENT
  Age: 67 Year
  Sex: Female
  Weight: 68 kg

DRUGS (5)
  1. SYMBICORT [Suspect]
     Dosage: 160/4.5 MCG
     Route: 055
  2. VERAMYST [Concomitant]
  3. SINGULAIR [Concomitant]
  4. SUDAFED 12 HOUR [Concomitant]
  5. SALINE [Concomitant]
     Route: 045

REACTIONS (3)
  - DYSGEUSIA [None]
  - INSOMNIA [None]
  - PALPITATIONS [None]
